FAERS Safety Report 5503859-X (Version None)
Quarter: 2007Q4

REPORT INFORMATION
  Report Type: 
  Country: None (occurrence: None)
  Receive Date: 20071101
  Receipt Date: 20071022
  Transmission Date: 20080405
  Serious: Yes (Death, Hospitalization)
  Sender: FDA-Public Use
  Company Number: JP-JNJFOC-20071006017

PATIENT
  Sex: Male
  Weight: 9.1 kg

DRUGS (10)
  1. REMICADE [Suspect]
     Indication: GRAFT VERSUS HOST DISEASE
     Route: 042
  2. PROTOPIC [Suspect]
     Indication: DRUG USE FOR UNKNOWN INDICATION
  3. PREDONINE [Suspect]
     Indication: DRUG USE FOR UNKNOWN INDICATION
  4. NARCOTIC ANALGESICS [Suspect]
     Indication: DRUG USE FOR UNKNOWN INDICATION
  5. TRANILAST [Concomitant]
  6. MYCOPHENOLATE MOFETIL [Concomitant]
     Route: 048
  7. THALIDOMIDE [Concomitant]
  8. ACTIVE VIA [Concomitant]
  9. MEDICAL OXYGEN [Concomitant]
  10. OCTREOTIDE ACETATE [Concomitant]

REACTIONS (3)
  - HISTIOCYTOSIS HAEMATOPHAGIC [None]
  - PANCREATITIS ACUTE [None]
  - RESPIRATORY FAILURE [None]
